FAERS Safety Report 14476189 (Version 1)
Quarter: 2018Q1

REPORT INFORMATION
  Report Type: Spontaneous
  Country: US (occurrence: US)
  Receive Date: 20180201
  Receipt Date: 20180201
  Transmission Date: 20180509
  Serious: No
  Sender: FDA-Public Use
  Company Number: US-SA-2018SA020356

PATIENT
  Age: 61 Year
  Sex: Male

DRUGS (3)
  1. PRALUENT [Suspect]
     Active Substance: ALIROCUMAB
     Route: 058
     Dates: start: 201710
  2. ROSUVASTATIN. [Concomitant]
     Active Substance: ROSUVASTATIN
  3. ALIROCUMAB PREFILLED PEN [Suspect]
     Active Substance: ALIROCUMAB
     Dates: start: 201710

REACTIONS (3)
  - Arthralgia [Unknown]
  - Asthenia [Unknown]
  - Myalgia [Unknown]

NARRATIVE: CASE EVENT DATE: 2017
